FAERS Safety Report 19130897 (Version 2)
Quarter: 2021Q2

REPORT INFORMATION
  Report Type: Spontaneous
  Country: US (occurrence: US)
  Receive Date: 20210413
  Receipt Date: 20210623
  Transmission Date: 20210717
  Serious: No
  Sender: FDA-Public Use
  Company Number: US-BRISTOL-MYERS SQUIBB COMPANY-BMS-2021-033183

PATIENT
  Age: 73 Year
  Sex: Male

DRUGS (1)
  1. SPRYCEL [Suspect]
     Active Substance: DASATINIB
     Dosage: 70 MILLIGRAM, QD
     Route: 048

REACTIONS (6)
  - COVID-19 [Unknown]
  - Pharyngeal swelling [Unknown]
  - Blister [Unknown]
  - Weight decreased [Unknown]
  - Fluid retention [Unknown]
  - Tinnitus [Unknown]
